FAERS Safety Report 10047547 (Version 1)
Quarter: 2014Q1

REPORT INFORMATION
  Report Type: Spontaneous
  Country: CA (occurrence: CA)
  Receive Date: 20140331
  Receipt Date: 20140331
  Transmission Date: 20141002
  Serious: Yes (Other)
  Sender: FDA-Public Use
  Company Number: CA-JNJFOC-20140316530

PATIENT
  Age: 19 Year
  Sex: Female
  Weight: 56.7 kg

DRUGS (4)
  1. ORTHO EVRA [Suspect]
     Indication: CONTRACEPTION
     Dosage: 1 PATCH/ 3 IN 4 WEEKS
     Route: 062
     Dates: start: 2013
  2. TYLENOL EXTRA STRENGTH [Suspect]
     Indication: MIGRAINE
     Route: 048
  3. TYLENOL EXTRA STRENGTH [Suspect]
     Indication: MIGRAINE
     Route: 048
  4. MELATONIN [Concomitant]
     Indication: SLEEP DISORDER
     Route: 048
     Dates: start: 201306

REACTIONS (7)
  - Concussion [Unknown]
  - Menstruation irregular [Recovered/Resolved]
  - Breast tenderness [Not Recovered/Not Resolved]
  - Migraine [Not Recovered/Not Resolved]
  - Inappropriate schedule of drug administration [Not Recovered/Not Resolved]
  - Unintended pregnancy [Unknown]
  - Drug ineffective [Unknown]
